FAERS Safety Report 8761157 (Version 1)
Quarter: 2012Q4

REPORT INFORMATION
  Report Type: 
  Country: US (occurrence: US)
  Receive Date: 20120830
  Receipt Date: 20120830
  Transmission Date: 20130627
  Serious: Yes (Hospitalization)
  Sender: FDA-Public Use
  Company Number: US-B.I. PHARMACEUTICALS,INC./RIDGEFIELD-2012-BP-20793BP

PATIENT
  Sex: Female

DRUGS (6)
  1. PRADAXA [Suspect]
     Indication: HEART RATE IRREGULAR
     Dosage: 300 mg
     Route: 048
     Dates: start: 201108, end: 201205
  2. ASPIRIN [Concomitant]
     Dosage: 81 mg
     Route: 048
  3. POTASSIUM [Concomitant]
     Dosage: 10 mEq
     Route: 048
  4. MATZIM [Concomitant]
     Dosage: 360 mg
     Route: 048
  5. METROPROLOL [Concomitant]
     Indication: HYPERTENSION
     Dosage: 100 mg
     Route: 048
  6. SIMVASTATIN [Concomitant]
     Indication: BLOOD CHOLESTEROL INCREASED
     Dosage: 10 mg
     Route: 048

REACTIONS (1)
  - Large intestinal haemorrhage [Recovered/Resolved]
